FAERS Safety Report 4824330-4 (Version None)
Quarter: 2005Q4

REPORT INFORMATION
  Report Type: 
  Country: None (occurrence: None)
  Receive Date: 20051108
  Receipt Date: 20051028
  Transmission Date: 20060501
  Serious: Yes (Other)
  Sender: FDA-Public Use
  Company Number: 2005149622

PATIENT
  Age: 50 Year
  Sex: Male

DRUGS (10)
  1. NELFINAVIR MESILATE (NELFINAVIR MESILATE) [Suspect]
     Indication: HIV INFECTION
  2. INDINAVIR (INDINAVIR) [Suspect]
     Indication: HIV INFECTION
  3. LAMIVUDINE/ZIDOVUDINE (LAMIVUDINE, ZIDOVUDINE) [Suspect]
     Indication: HIV INFECTION
  4. DAPSONE [Concomitant]
  5. NIZATIDINE [Concomitant]
  6. DIPHENHYDRAMINE HCL [Concomitant]
  7. IBUPROFEN [Concomitant]
  8. CYCLOBENZAPRINE HCL [Concomitant]
  9. METHADONE HCL [Concomitant]
  10. FLUCONAZOLE [Concomitant]

REACTIONS (3)
  - ELECTROCARDIOGRAM QT PROLONGED [None]
  - NODAL ARRHYTHMIA [None]
  - VENTRICULAR TACHYCARDIA [None]
